FAERS Safety Report 9813588 (Version 2)
Quarter: 2014Q1

REPORT INFORMATION
  Report Type: Report from Study
  Country: GB (occurrence: GB)
  Receive Date: 20140113
  Receipt Date: 20140118
  Transmission Date: 20141002
  Serious: Yes (Hospitalization, Other)
  Sender: FDA-Public Use
  Company Number: GB-ABBVIE-14P-167-1187010-00

PATIENT
  Age: 43 Year
  Sex: Male
  Weight: 71 kg

DRUGS (13)
  1. HUMIRA [Suspect]
     Indication: PSORIASIS
     Dosage: 6 INJECTIONS
     Route: 058
     Dates: start: 20080828
  2. CHLORPROMAZINE [Concomitant]
     Indication: PRODUCT USED FOR UNKNOWN INDICATION
     Dates: start: 20071228
  3. PIRITON [Concomitant]
     Indication: PRODUCT USED FOR UNKNOWN INDICATION
     Dates: start: 20071228
  4. RISPERIDONE [Concomitant]
     Indication: PRODUCT USED FOR UNKNOWN INDICATION
     Dates: start: 20071228
  5. TEMAZEPAM [Concomitant]
     Indication: PRODUCT USED FOR UNKNOWN INDICATION
     Dates: start: 20071228
  6. ZISPIN [Concomitant]
     Indication: PRODUCT USED FOR UNKNOWN INDICATION
     Dates: start: 20071228
  7. PEPTAC [Concomitant]
     Indication: PRODUCT USED FOR UNKNOWN INDICATION
     Dates: start: 20121206
  8. OMEPRAZOLE [Concomitant]
     Indication: PRODUCT USED FOR UNKNOWN INDICATION
     Dates: start: 20120410
  9. UNSPECIFIED NONOPIOD ANALGESICS [Concomitant]
     Indication: PRODUCT USED FOR UNKNOWN INDICATION
  10. UNSPECIFIED ANTIPYRETICS [Concomitant]
     Indication: PRODUCT USED FOR UNKNOWN INDICATION
  11. UNSPECIFIED ANTIRHEUMATICS [Concomitant]
     Indication: PRODUCT USED FOR UNKNOWN INDICATION
  12. CO-CODAMOL [Concomitant]
     Indication: PRODUCT USED FOR UNKNOWN INDICATION
  13. UNSPECIFIED PSORIASIS MEDICATION [Concomitant]
     Indication: PRODUCT USED FOR UNKNOWN INDICATION

REACTIONS (8)
  - Suicidal ideation [Not Recovered/Not Resolved]
  - Overdose [Recovered/Resolved]
  - Suicidal ideation [Recovered/Resolved]
  - Alcohol poisoning [Recovered/Resolved]
  - Suicidal ideation [Recovered/Resolved]
  - Poisoning deliberate [Recovered/Resolved]
  - Suicidal ideation [Not Recovered/Not Resolved]
  - Intentional self-injury [Recovered/Resolved]
